FAERS Safety Report 4778692-7 (Version None)
Quarter: 2005Q3

REPORT INFORMATION
  Report Type: 
  Country: None (occurrence: None)
  Receive Date: 20050926
  Receipt Date: 20030228
  Transmission Date: 20060218
  Serious: Yes (Hospitalization)
  Sender: FDA-Public Use
  Company Number: US-ROCHE-332869

PATIENT
  Age: 48 Year
  Sex: Male
  Weight: 88 kg

DRUGS (6)
  1. CAPECITABINE [Suspect]
     Route: 048
     Dates: start: 20030108, end: 20030218
  2. GEMCITABINE [Suspect]
     Route: 042
     Dates: start: 20030108, end: 20030218
  3. DURAGESIC-100 [Concomitant]
  4. UNKNOWN MEDICATION [Concomitant]
     Dosage: REPORTED AS MS SOLUTION
  5. ALEVE [Concomitant]
  6. ALLEGRA [Concomitant]

REACTIONS (1)
  - CONVULSION [None]
